FAERS Safety Report 17472740 (Version 1)
Quarter: 2020Q1

REPORT INFORMATION
  Report Type: Spontaneous
  Country: US (occurrence: US)
  Receive Date: 20200228
  Receipt Date: 20200228
  Transmission Date: 20200409
  Serious: No
  Sender: FDA-Public Use
  Company Number: None

PATIENT
  Age: 19 Year
  Sex: Female
  Weight: 58.5 kg

DRUGS (4)
  1. NEXPLANON [Suspect]
     Active Substance: ETONOGESTREL
     Indication: CONTRACEPTION
     Dosage: ?          QUANTITY:1 INJECTION(S);OTHER FREQUENCY:INSERTION;?
     Route: 058
     Dates: start: 20200114
  2. VITAMIN B12 [Concomitant]
     Active Substance: CYANOCOBALAMIN
  3. CRANBERRY SUPPOSITORY [Concomitant]
  4. VITAMIN C [Concomitant]
     Active Substance: ASCORBIC ACID

REACTIONS (19)
  - Nervousness [None]
  - Tremor [None]
  - Vulvovaginal pruritus [None]
  - Metrorrhagia [None]
  - Flatulence [None]
  - Mood swings [None]
  - Vulvovaginal inflammation [None]
  - Myalgia [None]
  - Pain in extremity [None]
  - Abdominal pain upper [None]
  - Back pain [None]
  - Depressed mood [None]
  - Nausea [None]
  - Change of bowel habit [None]
  - Anxiety [None]
  - Dizziness [None]
  - Vulvovaginal pain [None]
  - Muscle spasms [None]
  - Dyspnoea [None]

NARRATIVE: CASE EVENT DATE: 20200202
